FAERS Safety Report 5023699-8 (Version None)
Quarter: 2006Q2

REPORT INFORMATION
  Report Type: 
  Country: None (occurrence: None)
  Receive Date: 20060428
  Receipt Date: 20050721
  Transmission Date: 20061013
  Serious: Yes (Hospitalization)
  Sender: FDA-Public Use
  Company Number: US-2005-005122

PATIENT
  Age: 50 Year
  Sex: Female

DRUGS (1)
  1. LEUKINE [Suspect]

REACTIONS (2)
  - HYPOTENSION [None]
  - SYNCOPE [None]
